FAERS Safety Report 5311193-6 (Version None)
Quarter: 2007Q2

REPORT INFORMATION
  Report Type: 
  Country: None (occurrence: None)
  Receive Date: 20070430
  Receipt Date: 20070419
  Transmission Date: 20071010
  Serious: Yes (Other)
  Sender: FDA-Public Use
  Company Number: SEWYE502720APR07

PATIENT
  Sex: Male

DRUGS (8)
  1. ENBREL [Suspect]
     Indication: DRUG USE FOR UNKNOWN INDICATION
     Route: 058
     Dates: start: 20070305, end: 20070409
  2. ISONIAZID [Concomitant]
     Route: 048
     Dates: start: 20070102
  3. PARACETAMOL [Concomitant]
     Route: 048
  4. CALCIUM PHOSPHATE/FOLIC ACID [Concomitant]
     Route: 048
  5. IBUMETIN [Concomitant]
  6. SALAZOPYRIN [Concomitant]
     Dosage: UNKNOWN
  7. METHOTREXATE [Concomitant]
     Dates: start: 20030101, end: 20070409
  8. PYRIDOXINE HYDROCHLORIDE [Concomitant]
     Route: 048
     Dates: start: 20070102

REACTIONS (1)
  - PNEUMONITIS [None]
